FAERS Safety Report 11046715 (Version 1)
Quarter: 2015Q2

REPORT INFORMATION
  Report Type: Spontaneous
  Country: TW (occurrence: TW)
  Receive Date: 20150420
  Receipt Date: 20150420
  Transmission Date: 20150821
  Serious: Yes (Other)
  Sender: FDA-Public Use
  Company Number: TW-ACCORD-030153

PATIENT
  Age: 51 Year
  Sex: Male

DRUGS (4)
  1. COMBIVIR [Suspect]
     Active Substance: LAMIVUDINE\ZIDOVUDINE
     Indication: LARYNGEAL SQUAMOUS CELL CARCINOMA
     Dosage: LAMIVUDINE 150 MG AND ZIDOVUDINE 300 MG??1 TABLET TWICE DAILY
  2. FLUOROURACIL. [Suspect]
     Active Substance: FLUOROURACIL
     Indication: LARYNGEAL SQUAMOUS CELL CARCINOMA
  3. FOLINIC ACID [Suspect]
     Active Substance: LEUCOVORIN
     Indication: LARYNGEAL SQUAMOUS CELL CARCINOMA
  4. REYATAZ [Suspect]
     Active Substance: ATAZANAVIR SULFATE
     Indication: LARYNGEAL SQUAMOUS CELL CARCINOMA
     Dosage: 2 TABLETS ONCE DAILY

REACTIONS (4)
  - Dermatitis [Recovered/Resolved]
  - CD4 lymphocytes decreased [Recovering/Resolving]
  - Weight decreased [Unknown]
  - Mucosal inflammation [Recovered/Resolved]
